FAERS Safety Report 8902174 (Version 1)
Quarter: 2012Q4

REPORT INFORMATION
  Report Type: 
  Country: US (occurrence: US)
  Receive Date: 20121112
  Receipt Date: 20121112
  Transmission Date: 20130627
  Serious: Yes (Hospitalization)
  Sender: FDA-Public Use
  Company Number: US-VERTEX PHARMACEUTICAL INC.-2012-022115

PATIENT
  Age: 66 Year
  Sex: Male
  Weight: 130 kg

DRUGS (4)
  1. INCIVEK [Suspect]
     Indication: HEPATITIS C
     Dosage: 750 mg, UNK
     Route: 048
     Dates: start: 20120727, end: 20121019
  2. RIBAVIRIN [Suspect]
     Indication: HEPATITIS C
     Dosage: 600 mg, bid
     Dates: start: 20120727
  3. RIBAVIRIN [Suspect]
     Dosage: 800 mg, qd
  4. PEGASYS [Suspect]
     Indication: HEPATITIS C
     Dosage: 180 UNK, qw
     Route: 058
     Dates: start: 20120727

REACTIONS (2)
  - Anaemia [Unknown]
  - Tremor [Not Recovered/Not Resolved]
